FAERS Safety Report 7991831-X (Version None)
Quarter: 2011Q4

REPORT INFORMATION
  Report Type: 
  Country: None (occurrence: None)
  Receive Date: 20111219
  Receipt Date: 20111215
  Transmission Date: 20120403
  Serious: No
  Sender: FDA-Public Use
  Company Number: US-PFIZER INC-2011306525

PATIENT
  Age: 42 Year
  Sex: Male
  Weight: 118 kg

DRUGS (2)
  1. NICORETTE [Suspect]
     Indication: TOBACCO USER
     Dosage: UNK
     Dates: start: 20111001, end: 20111001
  2. CHANTIX [Suspect]
     Indication: TOBACCO USER
     Dosage: 0.5 MG, DAILY
     Route: 048
     Dates: start: 20111101, end: 20111101

REACTIONS (1)
  - DRUG INEFFECTIVE [None]
